FAERS Safety Report 10256465 (Version 1)
Quarter: 2014Q2

REPORT INFORMATION
  Report Type: Report from Study
  Country: JP (occurrence: JP)
  Receive Date: 20140624
  Receipt Date: 20140624
  Transmission Date: 20141212
  Serious: Yes (Death)
  Sender: FDA-Public Use
  Company Number: JP-JNJFOC-20130307435

PATIENT
  Age: 84 Year
  Sex: Female

DRUGS (5)
  1. RIVAROXABAN [Suspect]
     Indication: CEREBROVASCULAR ACCIDENT PROPHYLAXIS
     Route: 048
     Dates: start: 20120723, end: 20130223
  2. RIVAROXABAN [Suspect]
     Indication: ATRIAL FIBRILLATION
     Route: 048
     Dates: start: 20120723, end: 20130223
  3. EPLERENONE [Concomitant]
     Route: 048
  4. TAKEPRON [Concomitant]
     Route: 048
  5. ARICEPT [Concomitant]
     Route: 048

REACTIONS (1)
  - Sudden death [Fatal]
